FAERS Safety Report 4786148-0 (Version None)
Quarter: 2005Q4

REPORT INFORMATION
  Report Type: 
  Country: None (occurrence: None)
  Receive Date: 20051003
  Receipt Date: 20050921
  Transmission Date: 20060501
  Serious: Yes (Hospitalization)
  Sender: FDA-Public Use
  Company Number: PHEH2005US10496

PATIENT
  Age: 55 Year
  Sex: Male

DRUGS (2)
  1. GLEEVEC [Suspect]
     Indication: CHRONIC MYELOID LEUKAEMIA
     Dosage: UNK, UNK
     Dates: end: 20050901
  2. GLEEVEC [Suspect]
     Dates: start: 20050919

REACTIONS (3)
  - DRUG RESISTANCE [None]
  - OEDEMA [None]
  - SPLENOMEGALY [None]
